FAERS Safety Report 6782275-7 (Version None)
Quarter: 2010Q2

REPORT INFORMATION
  Report Type: 
  Country: None (occurrence: None)
  Receive Date: 20100621
  Receipt Date: 20100610
  Transmission Date: 20101027
  Serious: Yes (Other)
  Sender: FDA-Public Use
  Company Number: GB-BAXTER-2010BH015645

PATIENT
  Age: 57 Year
  Sex: Male

DRUGS (5)
  1. HEPARIN [Suspect]
     Indication: PROPHYLAXIS
     Route: 058
  2. HEPARIN [Suspect]
     Route: 040
  3. HEPARIN [Suspect]
     Route: 040
  4. HEPARIN [Suspect]
     Route: 058
  5. ENOXAPARIN SODIUM [Concomitant]
     Indication: PROPHYLAXIS
     Route: 065

REACTIONS (2)
  - HEPARIN-INDUCED THROMBOCYTOPENIA [None]
  - TRANSIENT GLOBAL AMNESIA [None]
